FAERS Safety Report 6251511-8 (Version None)
Quarter: 2009Q2

REPORT INFORMATION
  Report Type: 
  Country: None (occurrence: None)
  Receive Date: 20090626
  Receipt Date: 20090626
  Transmission Date: 20091009
  Serious: Yes (Other)
  Sender: FDA-Public Use
  Company Number: None

PATIENT
  Sex: Male
  Weight: 95.2554 kg

DRUGS (2)
  1. ALLOPURINOL [Suspect]
     Indication: GOUT
     Dosage: 1 TAB DAILY
     Dates: start: 20090501, end: 20090608
  2. LIPITOR [Concomitant]

REACTIONS (5)
  - ARTHRITIS [None]
  - CONDITION AGGRAVATED [None]
  - GOUT [None]
  - PRODUCT SUBSTITUTION ISSUE [None]
  - SLEEP DISORDER [None]
